FAERS Safety Report 6883777-5 (Version None)
Quarter: 2010Q3

REPORT INFORMATION
  Report Type: 
  Country: None (occurrence: None)
  Receive Date: 20100727
  Receipt Date: 20100712
  Transmission Date: 20110219
  Serious: Yes (Hospitalization)
  Sender: FDA-Public Use
  Company Number: 200UBI009154

PATIENT
  Age: 60 Year
  Sex: Female

DRUGS (7)
  1. ZEVALIN [Suspect]
     Indication: B-CELL LYMPHOMA
     Dosage: 847 MBQ; 1X; IV
     Route: 042
     Dates: start: 20080125, end: 20080125
  2. RITUXIMAB [Concomitant]
  3. CARMUSTINE [Concomitant]
  4. ETOPOSIDE [Concomitant]
  5. CYTARABINE [Concomitant]
  6. MELPHALAN [Concomitant]
  7. PREV MEDS [Concomitant]

REACTIONS (1)
  - HERPES OESOPHAGITIS [None]
